FAERS Safety Report 18228341 (Version 2)
Quarter: 2020Q3

REPORT INFORMATION
  Report Type: Spontaneous
  Country: AR (occurrence: AR)
  Receive Date: 20200903
  Receipt Date: 20200923
  Transmission Date: 20201103
  Serious: Yes (Other)
  Sender: FDA-Public Use
  Company Number: NVSC2020AR242512

PATIENT
  Age: 45 Year
  Sex: Male

DRUGS (2)
  1. SECUKINUMAB. [Suspect]
     Active Substance: SECUKINUMAB
     Indication: PSORIASIS
     Dosage: 300 MG, QMO
     Route: 065
     Dates: start: 201812
  2. SECUKINUMAB. [Suspect]
     Active Substance: SECUKINUMAB
     Dosage: UNK
     Route: 065
     Dates: start: 20200722

REACTIONS (4)
  - Myalgia [Recovered/Resolved]
  - Asthenia [Unknown]
  - COVID-19 [Recovered/Resolved]
  - Fatigue [Unknown]

NARRATIVE: CASE EVENT DATE: 20200820
